FAERS Safety Report 5127051-6 (Version None)
Quarter: 2006Q4

REPORT INFORMATION
  Report Type: 
  Country: None (occurrence: None)
  Receive Date: 20061013
  Receipt Date: 20061004
  Transmission Date: 20070319
  Serious: Yes (Hospitalization, Other)
  Sender: FDA-Public Use
  Company Number: US-JNJFOC-20061001566

PATIENT
  Sex: Female
  Weight: 71.67 kg

DRUGS (1)
  1. DURAGESIC-100 [Suspect]
     Indication: BACK PAIN
     Route: 062

REACTIONS (4)
  - CONDITION AGGRAVATED [None]
  - ENDOMETRIOSIS [None]
  - HYPERHIDROSIS [None]
  - OVARIAN CYST [None]
